FAERS Safety Report 10504837 (Version 1)
Quarter: 2014Q4

REPORT INFORMATION
  Report Type: Spontaneous
  Country: US (occurrence: US)
  Receive Date: 20141008
  Receipt Date: 20141008
  Transmission Date: 20150528
  Serious: Yes (Hospitalization, Other)
  Sender: FDA-Public Use
  Company Number: US-ABBVIE-14P-163-1290339-00

PATIENT
  Sex: Male

DRUGS (2)
  1. ANDROGEL [Suspect]
     Active Substance: TESTOSTERONE
     Indication: BLOOD TESTOSTERONE DECREASED
     Route: 062
     Dates: start: 200901, end: 201303
  2. TESTIM [Suspect]
     Active Substance: TESTOSTERONE
     Indication: BLOOD TESTOSTERONE DECREASED
     Route: 062
     Dates: start: 200901, end: 201303

REACTIONS (12)
  - Myocardial infarction [Unknown]
  - Physical disability [Unknown]
  - Impaired work ability [Unknown]
  - Pain [Unknown]
  - Depression [Unknown]
  - Asthenia [Unknown]
  - Memory impairment [Unknown]
  - Emotional disorder [Unknown]
  - Anxiety [Unknown]
  - Economic problem [Unknown]
  - Cerebellar infarction [Unknown]
  - Injury [Unknown]

NARRATIVE: CASE EVENT DATE: 20090813
